FAERS Safety Report 4404187-6 (Version None)
Quarter: 2004Q3

REPORT INFORMATION
  Report Type: 
  Country: None (occurrence: None)
  Receive Date: 20040721
  Receipt Date: 20040721
  Transmission Date: 20050211
  Serious: No
  Sender: FDA-Public Use
  Company Number: None

PATIENT
  Age: 69 Year
  Sex: Male
  Weight: 53.3 kg

DRUGS (13)
  1. CEFAZOLIN [Suspect]
     Indication: PNEUMONIA
     Dosage: 2 GM IV
     Route: 042
     Dates: start: 20040128, end: 20040203
  2. PIPERACILLIN/TAZOBACTAM [Suspect]
     Indication: PNEUMONIA
     Dosage: 375 GM IV
     Route: 042
     Dates: start: 20040124, end: 20040124
  3. LANSOPRAZOLE [Concomitant]
  4. LACTOBACILLUS GRANULES [Concomitant]
  5. KAOLIN/PECTIN [Concomitant]
  6. BISACODYL [Concomitant]
  7. SORBITOL [Concomitant]
  8. GUAIFENESIN (ALC-F/SF) [Concomitant]
  9. OMEPRAZOLE [Concomitant]
  10. NEUTRA-PHOS POWDER [Concomitant]
  11. METOCLOPRAMIDE [Concomitant]
  12. HUMULIN R [Concomitant]
  13. ACETAMINOPHEN [Concomitant]

REACTIONS (1)
  - CLOSTRIDIAL INFECTION [None]
